FAERS Safety Report 8399148-9 (Version None)
Quarter: 2012Q2

REPORT INFORMATION
  Report Type: 
  Country: None (occurrence: None)
  Receive Date: 20120531
  Receipt Date: 20120502
  Transmission Date: 20120825
  Serious: No
  Sender: FDA-Public Use
  Company Number: US-BAYER-2012-048477

PATIENT
  Sex: Female
  Weight: 48 kg

DRUGS (1)
  1. ALEVE (CAPLET) [Suspect]
     Indication: ARTHRITIS
     Dosage: 1 DF, BID
     Route: 048
     Dates: start: 20120401

REACTIONS (2)
  - ABDOMINAL DISCOMFORT [None]
  - DRUG EFFECT DECREASED [None]
